FAERS Safety Report 25268495 (Version 1)
Quarter: 2025Q2

REPORT INFORMATION
  Report Type: Spontaneous
  Country: BG (occurrence: BG)
  Receive Date: 20250505
  Receipt Date: 20250505
  Transmission Date: 20250716
  Serious: Yes (Death, Other)
  Sender: SANOFI AVENTIS
  Company Number: BG-SA-2025SA128427

PATIENT
  Age: 70 Year
  Sex: Female

DRUGS (3)
  1. ISATUXIMAB [Suspect]
     Active Substance: ISATUXIMAB
     Indication: Plasma cell myeloma
     Route: 042
     Dates: start: 202404, end: 202411
  2. CARFILZOMIB [Concomitant]
     Active Substance: CARFILZOMIB
     Indication: Plasma cell myeloma
     Route: 065
     Dates: start: 202404, end: 202411
  3. DEXAMETHASONE [Concomitant]
     Active Substance: DEXAMETHASONE
     Indication: Plasma cell myeloma
     Route: 065
     Dates: start: 202404, end: 202411

REACTIONS (3)
  - Rectal haemorrhage [Fatal]
  - Subileus [Fatal]
  - Mucosal hypertrophy [Unknown]

NARRATIVE: CASE EVENT DATE: 20241101
